FAERS Safety Report 8927011 (Version 1)
Quarter: 2012Q4

REPORT INFORMATION
  Report Type: 
  Country: GB (occurrence: GB)
  Receive Date: 20121127
  Receipt Date: 20121127
  Transmission Date: 20130627
  Serious: Yes (Hospitalization)
  Sender: FDA-Public Use
  Company Number: GB-PFIZER INC-2012293974

PATIENT
  Age: 36 Year
  Sex: Female
  Weight: 78 kg

DRUGS (6)
  1. GENOTROPIN [Suspect]
     Dosage: 0.6 mg, 1x/day,7 injections/week.
     Route: 058
     Dates: start: 20100726
  2. MICROGYNON [Concomitant]
     Indication: CONTRACEPTION
     Dosage: UNK
     Dates: start: 20001020
  3. MICROGYNON [Concomitant]
     Indication: MENSTRUAL DISORDER
  4. EVRA [Concomitant]
     Indication: LUTEINIZING HORMONE DEFICIENCY
     Dosage: UNK
     Dates: start: 20070330
  5. EVRA [Concomitant]
     Indication: FOLLICLE-STIMULATING HORMONE DEFICIENCY
  6. EVRA [Concomitant]
     Indication: HYPOGONADISM FEMALE

REACTIONS (1)
  - Pre-eclampsia [Unknown]
